FAERS Safety Report 11725207 (Version 1)
Quarter: 2015Q4

REPORT INFORMATION
  Report Type: Spontaneous
  Country: US (occurrence: US)
  Receive Date: 20151111
  Receipt Date: 20151111
  Transmission Date: 20160304
  Serious: No
  Sender: FDA-Public Use
  Company Number: US-UCBSA-2014021468

PATIENT
  Sex: Female

DRUGS (4)
  1. VIMPAT [Suspect]
     Active Substance: LACOSAMIDE
     Dosage: DAILY DOSE: 200 MG
     Dates: start: 2014, end: 2014
  2. VIMPAT [Suspect]
     Active Substance: LACOSAMIDE
     Dosage: DAILY DOSE: 250 MG
     Dates: start: 2014
  3. ONFI [Concomitant]
     Active Substance: CLOBAZAM
     Indication: PRODUCT USED FOR UNKNOWN INDICATION
     Dosage: UNK
  4. VIMPAT [Suspect]
     Active Substance: LACOSAMIDE
     Indication: SEIZURE
     Dosage: DAILY DOSE: 100 MG
     Dates: start: 2014, end: 2014

REACTIONS (5)
  - Constipation [Unknown]
  - Gastrointestinal pain [Unknown]
  - Disease progression [Unknown]
  - Fatigue [Unknown]
  - Drug ineffective [Unknown]

NARRATIVE: CASE EVENT DATE: 2014
